FAERS Safety Report 15431393 (Version 1)
Quarter: 2018Q3

REPORT INFORMATION
  Report Type: Spontaneous
  Country: US (occurrence: US)
  Receive Date: 20180926
  Receipt Date: 20180926
  Transmission Date: 20181010
  Serious: Yes (Other)
  Sender: FDA-Public Use
  Company Number: US-SA-2018SA134639

PATIENT
  Age: 48 Year
  Sex: Female
  Weight: 55.33 kg

DRUGS (26)
  1. OMEPRAZOLE. [Concomitant]
     Active Substance: OMEPRAZOLE
     Route: 048
  2. RANITIDINE. [Concomitant]
     Active Substance: RANITIDINE
     Dosage: 150 MG
     Route: 048
  3. THEOPHYLLINE [Concomitant]
     Active Substance: THEOPHYLLINE ANHYDROUS
     Dosage: 300 MG
     Route: 048
  4. ALOXI [Concomitant]
     Active Substance: PALONOSETRON HYDROCHLORIDE
  5. DIAZEPAM. [Concomitant]
     Active Substance: DIAZEPAM
     Dosage: 5 MG
     Route: 048
  6. SUFENTANIL [Concomitant]
     Active Substance: SUFENTANIL
  7. MIDAZOLAM [Concomitant]
     Active Substance: MIDAZOLAM HYDROCHLORIDE
  8. FENTANYL. [Concomitant]
     Active Substance: FENTANYL
     Dosage: 100 UNK
  9. DECADRON (DEXAMETHASONE SODIUM PHOSPHATE) [Concomitant]
     Active Substance: DEXAMETHASONE SODIUM PHOSPHATE
  10. NEULASTA [Concomitant]
     Active Substance: PEGFILGRASTIM
     Dosage: 6 MG
  11. KETOROLAC [Concomitant]
     Active Substance: KETOROLAC\KETOROLAC TROMETHAMINE
     Dosage: 30 MG/ML
  12. DOXORUBICIN [Concomitant]
     Active Substance: DOXORUBICIN
  13. PROPOFOL. [Concomitant]
     Active Substance: PROPOFOL
  14. NEOSAR [Concomitant]
     Active Substance: CYCLOPHOSPHAMIDE
  15. PEPCID [FAMOTIDINE] [Concomitant]
     Dosage: 40 MG
     Route: 048
  16. TAXOTERE [Suspect]
     Active Substance: DOCETAXEL
     Indication: BREAST CANCER FEMALE
     Dosage: 120 MG, QOW
     Route: 042
     Dates: start: 20130827, end: 20130827
  17. CEFAZOLIN [Concomitant]
     Active Substance: CEFAZOLIN
  18. NYSTATIN. [Concomitant]
     Active Substance: NYSTATIN
     Dosage: 15 ML
     Route: 048
  19. TAXOTERE [Suspect]
     Active Substance: DOCETAXEL
     Dosage: 120 MG, QOW
     Route: 042
     Dates: start: 20140318, end: 20140318
  20. PROMETHAZINE [Concomitant]
     Active Substance: PROMETHAZINE\PROMETHAZINE HYDROCHLORIDE
  21. ZAFIRLUKAST. [Concomitant]
     Active Substance: ZAFIRLUKAST
     Dosage: 20 MG, QD
  22. VENLAFAXINE [Concomitant]
     Active Substance: VENLAFAXINE HYDROCHLORIDE
     Dosage: 50 MG, BID
     Route: 048
     Dates: start: 20140325, end: 20140325
  23. ONDANSETRON [Concomitant]
     Active Substance: ONDANSETRON
     Dosage: 4 UNK
  24. HYDROCODONE [Concomitant]
     Active Substance: HYDROCODONE
  25. REGLAN [METOCLOPRAMIDE] [Concomitant]
     Dosage: 50 MG
     Route: 042
  26. BENADRYL [Concomitant]
     Active Substance: DIPHENHYDRAMINE HYDROCHLORIDE
     Dosage: 50 MG

REACTIONS (3)
  - Anxiety [Unknown]
  - Emotional distress [Unknown]
  - Alopecia [Recovering/Resolving]

NARRATIVE: CASE EVENT DATE: 201409
